FAERS Safety Report 15266056 (Version 1)
Quarter: 2018Q3

REPORT INFORMATION
  Report Type: Spontaneous
  Country: US (occurrence: US)
  Receive Date: 20180810
  Receipt Date: 20180810
  Transmission Date: 20181010
  Serious: Yes (Other)
  Sender: FDA-Public Use
  Company Number: US-BRISTOL-MYERS SQUIBB COMPANY-BMS-2018-071993

PATIENT
  Age: 59 Year
  Sex: Female
  Weight: 58.96 kg

DRUGS (1)
  1. OPDIVO [Suspect]
     Active Substance: NIVOLUMAB
     Indication: NON-SMALL CELL LUNG CANCER
     Dosage: UNK, Q2WK, 60?MINUTE INFUSION
     Route: 042
     Dates: start: 2015, end: 201802

REACTIONS (3)
  - Stomatitis [Unknown]
  - Oral mucosal blistering [Unknown]
  - Blister [Unknown]

NARRATIVE: CASE EVENT DATE: 201802
